FAERS Safety Report 7097013-0 (Version None)
Quarter: 2010Q4

REPORT INFORMATION
  Report Type: 
  Country: None (occurrence: None)
  Receive Date: 20101111
  Receipt Date: 20091215
  Transmission Date: 20110411
  Serious: No
  Sender: FDA-Public Use
  Company Number: US-KINGPHARMUSA00001-K200901562

PATIENT
  Sex: Male

DRUGS (7)
  1. EMBEDA [Suspect]
     Indication: FIBROMYALGIA
     Dosage: 200 MG, Q 12 HOURS
     Route: 048
     Dates: start: 20091101
  2. EMBEDA [Suspect]
     Indication: PAIN
  3. GABAPENTIN [Concomitant]
     Dosage: 1200 MG, TID
     Route: 048
  4. CYMBALTA [Concomitant]
     Dosage: 60 MG, QD
  5. SEROQUEL [Concomitant]
     Dosage: UNK
  6. MOBIC [Concomitant]
     Dosage: 7.5 MG, QD
  7. LIDODERM [Concomitant]
     Dosage: Q12 HOURS
     Route: 061

REACTIONS (1)
  - HEADACHE [None]
